FAERS Safety Report 23896171 (Version 2)
Quarter: 2024Q3

REPORT INFORMATION
  Report Type: Spontaneous
  Country: ES (occurrence: ES)
  Receive Date: 20240524
  Receipt Date: 20240911
  Transmission Date: 20241017
  Serious: Yes (Other)
  Sender: AUROBINDO
  Company Number: ES-ROCHE-3004294

PATIENT
  Age: 59 Year
  Sex: Male
  Weight: 93.1 kg

DRUGS (48)
  1. CARBOPLATIN [Suspect]
     Active Substance: CARBOPLATIN
     Indication: Lung cancer metastatic
     Dosage: 605 MILLIGRAM
     Route: 042
     Dates: start: 20210423
  2. PEMETREXED [Suspect]
     Active Substance: PEMETREXED
     Indication: Lung cancer metastatic
     Dosage: 1015 MILLIGRAM, 3 WEEKS
     Route: 042
     Dates: start: 20210423
  3. ATEZOLIZUMAB [Suspect]
     Active Substance: ATEZOLIZUMAB
     Indication: Lung cancer metastatic
     Dosage: UNK
     Route: 041
  4. ATEZOLIZUMAB [Suspect]
     Active Substance: ATEZOLIZUMAB
     Dosage: UNK, 3 WEEK (ON 14/MAY/2021, RECEIVED MOST RECENT DOSE OF ATEZOLIZUMAB PRIOR TO AE.)
     Route: 041
     Dates: start: 20210423
  5. PEMBROLIZUMAB [Suspect]
     Active Substance: PEMBROLIZUMAB
     Indication: Lung cancer metastatic
     Dosage: UNK
     Route: 042
  6. PEMBROLIZUMAB [Suspect]
     Active Substance: PEMBROLIZUMAB
     Dosage: UNK, 3 WEEKS (ON 14/MAY/2021, RECEIVED MOST RECENT DOSE OF PEMBROLIZUMAB PRIOR TO AE.)
     Route: 042
     Dates: start: 20210423
  7. TIRAGOLUMAB [Suspect]
     Active Substance: TIRAGOLUMAB
     Indication: Lung cancer metastatic
     Dosage: UNK
     Route: 042
  8. TIRAGOLUMAB [Suspect]
     Active Substance: TIRAGOLUMAB
     Dosage: UNK
     Route: 042
     Dates: start: 20210423
  9. EBASTINE [Concomitant]
     Active Substance: EBASTINE
     Indication: Conjunctivitis
     Dosage: 10 MILLIGRAM, ONCE A DAY
     Route: 048
     Dates: start: 20220315, end: 20220320
  10. EBASTINE [Concomitant]
     Active Substance: EBASTINE
     Indication: Rhinorrhoea
     Dosage: 10 MILLIGRAM, ONCE A DAY
     Route: 048
     Dates: start: 20230124
  11. FOLATE SODIUM [Concomitant]
     Active Substance: FOLATE SODIUM
     Indication: Product used for unknown indication
     Dosage: 400 MICROGRAM, ONCE A DAY
     Route: 048
     Dates: start: 20210422
  12. COBALAMIN [Concomitant]
     Active Substance: COBALAMIN
     Indication: Product used for unknown indication
     Dosage: 1000 MICROGRAM, AS NECESSARY
     Route: 048
     Dates: start: 20210422
  13. DEXTROMETHORPHAN [Concomitant]
     Active Substance: DEXTROMETHORPHAN
     Indication: Nasal congestion
     Dosage: 10 MILLILITER, TWO TIMES A DAY
     Route: 048
     Dates: start: 20240221, end: 20240224
  14. BILASTINE [Concomitant]
     Active Substance: BILASTINE
     Indication: Conjunctivitis
     Dosage: 20 MILLIGRAM, ONCE A DAY
     Route: 048
     Dates: start: 20220315, end: 20220830
  15. METFORMIN [Concomitant]
     Active Substance: METFORMIN HYDROCHLORIDE
     Indication: Product used for unknown indication
     Dosage: 850 MILLIGRAM, ONCE A DAY
     Route: 048
     Dates: start: 20210622, end: 20220829
  16. SITAGLIPTIN [Concomitant]
     Active Substance: SITAGLIPTIN
     Indication: Hyperglycaemia
     Dosage: 50 MILLIGRAM, ONCE A DAY
     Route: 048
     Dates: start: 20210923
  17. NEBIVOLOL [Concomitant]
     Active Substance: NEBIVOLOL
     Indication: Product used for unknown indication
     Dosage: 5 MILLIGRAM, ONCE A DAY
     Route: 048
  18. PENTOXIFYLLINE [Concomitant]
     Active Substance: PENTOXIFYLLINE
     Indication: Arthritis
     Dosage: 400 MILLIGRAM, TWO TIMES A DAY
     Route: 065
     Dates: start: 20231214, end: 20240509
  19. PENTOXIFYLLINE [Concomitant]
     Active Substance: PENTOXIFYLLINE
     Dosage: 400 MILLIGRAM, TWO TIMES A DAY
     Route: 065
     Dates: start: 20240620
  20. LORMETAZEPAM [Concomitant]
     Active Substance: LORMETAZEPAM
     Indication: Insomnia
     Dosage: 2 MILLIGRAM, ONCE A DAY
     Route: 048
     Dates: start: 20230329
  21. LEVOCABASTINE [Concomitant]
     Active Substance: LEVOCABASTINE
     Indication: Conjunctivitis
     Dosage: 0.5 MILLIGRAM, AS NECESSARY
     Route: 001
     Dates: start: 20210626, end: 20220222
  22. MODERNA COVID-19 VACCINE [Concomitant]
     Active Substance: ELASOMERAN
     Indication: Product used for unknown indication
     Dosage: UNK, 1 AS NECESSARY
     Route: 030
     Dates: start: 20210603, end: 20210603
  23. MODERNA COVID-19 VACCINE [Concomitant]
     Active Substance: ELASOMERAN
     Dosage: UNK, 1 AS NECESSARY
     Route: 030
     Dates: start: 20211123, end: 20211123
  24. MODERNA COVID-19 VACCINE [Concomitant]
     Active Substance: ELASOMERAN
     Dosage: UNK, 1 AS NECESSARY
     Route: 030
     Dates: start: 20211223, end: 20211223
  25. HYDROCHLOROTHIAZIDE [Concomitant]
     Active Substance: HYDROCHLOROTHIAZIDE
     Indication: Product used for unknown indication
     Dosage: 25 MILLIGRAM, ONCE A DAY
     Route: 048
  26. DEXAMETHASONE [Concomitant]
     Active Substance: DEXAMETHASONE
     Indication: Product used for unknown indication
     Dosage: 12 MILLIGRAM, 3 WEEKS
     Route: 065
     Dates: start: 20210422, end: 20210629
  27. DEXAMETHASONE [Concomitant]
     Active Substance: DEXAMETHASONE
     Dosage: 12 MILLIGRAM, 3 WEEKS
     Route: 042
     Dates: start: 20210423, end: 20210630
  28. DEXAMETHASONE [Concomitant]
     Active Substance: DEXAMETHASONE
     Dosage: 12 MILLIGRAM,  3 WEEEKS
     Route: 065
     Dates: start: 20210424, end: 20210701
  29. DEXAMETHASONE [Concomitant]
     Active Substance: DEXAMETHASONE
     Dosage: 4 MILLIGRAM, 3 WEEKS
     Route: 065
     Dates: start: 20210503
  30. DEXAMETHASONE [Concomitant]
     Active Substance: DEXAMETHASONE
     Dosage: 8 MILLIGRAM, 3 WEEKS
     Route: 065
     Dates: start: 20210722
  31. DEXAMETHASONE [Concomitant]
     Active Substance: DEXAMETHASONE
     Dosage: 8 MILLIGRAM, 3 WEEKS
     Route: 042
     Dates: start: 20210723
  32. DEXAMETHASONE [Concomitant]
     Active Substance: DEXAMETHASONE
     Dosage: 8 MILLIGRAM, 3 WEEKS
     Route: 065
     Dates: start: 20210724
  33. FAMOTIDINE [Concomitant]
     Active Substance: FAMOTIDINE
     Indication: Gastrointestinal disorder prophylaxis
     Dosage: 20 MILLIGRAM, ONCE A DAY
     Route: 048
     Dates: start: 20210727
  34. MELATONIN [Concomitant]
     Active Substance: MELATONIN
     Indication: Insomnia
     Dosage: 1.8 MILLIGRAM, ONCE A DAY
     Route: 048
     Dates: start: 20220628, end: 20220808
  35. ACETAMINOPHEN [Concomitant]
     Active Substance: ACETAMINOPHEN
     Indication: Pyrexia
     Dosage: 1 GRAM, AS NECESSARY
     Route: 048
     Dates: start: 20210510
  36. ACETAMINOPHEN [Concomitant]
     Active Substance: ACETAMINOPHEN
     Indication: Back pain
     Dosage: 1 GRAM, 3 TIMES A DAY
     Route: 048
     Dates: start: 20230107, end: 20230109
  37. ACETAMINOPHEN [Concomitant]
     Active Substance: ACETAMINOPHEN
     Dosage: 1 GRAM, ONCE A DAY
     Route: 048
     Dates: start: 20230624, end: 20230626
  38. FLUCONAZOLE [Concomitant]
     Active Substance: FLUCONAZOLE
     Indication: Product used for unknown indication
     Dosage: 50 MILLIGRAM, ONCE A DAY
     Route: 048
     Dates: start: 20210611, end: 20210621
  39. ALPRAZOLAM [Concomitant]
     Active Substance: ALPRAZOLAM
     Indication: Insomnia
     Dosage: 0.25 MILLIGRAM, ONCE A DAY
     Route: 048
     Dates: start: 20220201, end: 20220628
  40. ALPRAZOLAM [Concomitant]
     Active Substance: ALPRAZOLAM
     Indication: Anxiety
  41. DEXAMETHASONE [Concomitant]
     Active Substance: DEXAMETHASONE
     Indication: Product used for unknown indication
     Dosage: 8 MILLIGRAM, 3 WEEKS
     Route: 048
     Dates: start: 20210723
  42. DEXAMETHASONE [Concomitant]
     Active Substance: DEXAMETHASONE
     Dosage: 12 MILLIGRAM, 3 WEEKS
     Route: 048
     Dates: start: 20210422, end: 20210629
  43. DEXAMETHASONE [Concomitant]
     Active Substance: DEXAMETHASONE
     Dosage: 12 MILLIGRAM, 3 WEEKS
     Route: 048
     Dates: start: 20210424, end: 20210701
  44. DEXAMETHASONE [Concomitant]
     Active Substance: DEXAMETHASONE
     Dosage: 4 MILLIGRAM, TWO TIMES A DAY
     Route: 048
     Dates: start: 20210503
  45. DEXAMETHASONE [Concomitant]
     Active Substance: DEXAMETHASONE
     Dosage: 12 MILLIGRAM
     Route: 048
     Dates: start: 20210423, end: 20210630
  46. DEXAMETHASONE [Concomitant]
     Active Substance: DEXAMETHASONE
     Dosage: 8 MILLIGRAM, 3 WEEKS
     Route: 048
     Dates: start: 20210724
  47. DEXAMETHASONE [Concomitant]
     Active Substance: DEXAMETHASONE
     Dosage: 8 MILLIGRAM, 3 WEEK
     Route: 048
     Dates: start: 20210722
  48. ETORICOXIB [Concomitant]
     Active Substance: ETORICOXIB
     Indication: Product used for unknown indication
     Dosage: 60 MILLIGRAM
     Route: 048
     Dates: start: 20240624

REACTIONS (1)
  - Hyperthyroidism [Recovered/Resolved]

NARRATIVE: CASE EVENT DATE: 20210603
